FAERS Safety Report 4905813-5 (Version None)
Quarter: 2006Q1

REPORT INFORMATION
  Report Type: 
  Country: None (occurrence: None)
  Receive Date: 20060208
  Receipt Date: 20050217
  Transmission Date: 20060701
  Serious: Yes (Hospitalization)
  Sender: FDA-Public Use
  Company Number: US-MERCK-0502USA02336

PATIENT
  Age: 78 Year
  Sex: Female
  Weight: 82 kg

DRUGS (1)
  1. VIOXX [Suspect]
     Indication: ARTHRITIS
     Route: 048
     Dates: start: 20010914, end: 20030312

REACTIONS (5)
  - ANXIETY [None]
  - EMOTIONAL DISORDER [None]
  - MENTAL DISORDER [None]
  - RETINAL DETACHMENT [None]
  - TRANSIENT ISCHAEMIC ATTACK [None]
